FAERS Safety Report 5709881-2 (Version None)
Quarter: 2008Q2

REPORT INFORMATION
  Report Type: 
  Country: None (occurrence: None)
  Receive Date: 20080418
  Receipt Date: 20070426
  Transmission Date: 20081010
  Serious: No
  Sender: FDA-Public Use
  Company Number: US-ASTRAZENECA-2007UW08202

PATIENT
  Age: 79 Year
  Sex: Male
  Weight: 76.2 kg

DRUGS (8)
  1. TOPROL-XL [Suspect]
     Route: 048
     Dates: start: 20061201
  2. COUMADIN [Concomitant]
  3. IMDUR [Concomitant]
  4. LIPITOR [Concomitant]
  5. FUROSEMIDE [Concomitant]
  6. K-DUR [Concomitant]
  7. XANAX [Concomitant]
  8. ACIPHEX [Concomitant]

REACTIONS (3)
  - MYALGIA [None]
  - NEUROPATHY PERIPHERAL [None]
  - PAIN IN EXTREMITY [None]
